FAERS Safety Report 12175123 (Version 1)
Quarter: 2016Q1

REPORT INFORMATION
  Report Type: Spontaneous
  Country: BR (occurrence: BR)
  Receive Date: 20160314
  Receipt Date: 20160314
  Transmission Date: 20160526
  Serious: Yes (Other)
  Sender: FDA-Public Use
  Company Number: BR-JNJFOC-20151116656

PATIENT
  Sex: Female

DRUGS (4)
  1. SIMPONI [Suspect]
     Active Substance: GOLIMUMAB
     Indication: RHEUMATOID ARTHRITIS
     Route: 058
     Dates: start: 20150715
  2. LABIRIN [Concomitant]
     Active Substance: BETAHISTINE
     Route: 065
  3. NIMODIPINE. [Concomitant]
     Active Substance: NIMODIPINE
     Route: 065
  4. DIOVAN [Concomitant]
     Active Substance: VALSARTAN
     Route: 065

REACTIONS (3)
  - Dermatitis allergic [Recovering/Resolving]
  - Purulence [Recovering/Resolving]
  - Sciatica [Unknown]
